FAERS Safety Report 7670740-X (Version None)
Quarter: 2011Q3

REPORT INFORMATION
  Report Type: 
  Country: None (occurrence: None)
  Receive Date: 20110809
  Receipt Date: 20110805
  Transmission Date: 20111222
  Serious: Yes (Life-Threatening, Hospitalization)
  Sender: FDA-Public Use
  Company Number: FR-BRISTOL-MYERS SQUIBB COMPANY-15950355

PATIENT
  Age: 52 Year
  Sex: Female

DRUGS (10)
  1. TRUVADA [Concomitant]
     Dosage: TRUVADA 200 MG/245 MG FILM-COATED TABLET
     Route: 048
     Dates: end: 20110725
  2. PROPRANOLOL [Concomitant]
     Dosage: 0.5 UNITS NOS
  3. VITAMIN A [Concomitant]
  4. NEXIUM [Concomitant]
  5. NORVIR [Concomitant]
     Route: 048
     Dates: end: 20110725
  6. REYATAZ [Suspect]
     Indication: HIV INFECTION
     Route: 048
     Dates: end: 20110725
  7. IRBESARTAN [Concomitant]
  8. EFFEXOR [Concomitant]
  9. BACTRIM F [Concomitant]
     Route: 048
  10. CIPROFLOXACIN [Concomitant]

REACTIONS (4)
  - NEPHROLITHIASIS [None]
  - PYELONEPHRITIS [None]
  - RENAL FAILURE ACUTE [None]
  - SEPTIC SHOCK [None]
